FAERS Safety Report 14085308 (Version 2)
Quarter: 2017Q4

REPORT INFORMATION
  Report Type: Spontaneous
  Country: US (occurrence: US)
  Receive Date: 20171013
  Receipt Date: 20171016
  Transmission Date: 20180321
  Serious: No
  Sender: FDA-Public Use
  Company Number: US-PFIZER INC-2015197230

PATIENT
  Age: 29 Year
  Sex: Male

DRUGS (10)
  1. NOXAFIL [Concomitant]
     Active Substance: POSACONAZOLE
     Indication: NEUTROPENIA
     Dosage: UNK
  2. VANCOMYCIN HCL [Suspect]
     Active Substance: VANCOMYCIN HYDROCHLORIDE
     Indication: FEBRILE NEUTROPENIA
     Dosage: UNK
  3. DIFLUCAN [Concomitant]
     Active Substance: FLUCONAZOLE
     Dosage: UNK
  4. ZYVOX [Concomitant]
     Active Substance: LINEZOLID
     Dosage: UNK
  5. ZOSYN [Concomitant]
     Active Substance: PIPERACILLIN SODIUM\TAZOBACTAM SODIUM
     Dosage: UNK
  6. VFEND [Concomitant]
     Active Substance: VORICONAZOLE
     Dosage: 400 MG, 1X/DAY
     Route: 048
  7. FLUDARABINE [Concomitant]
     Active Substance: FLUDARABINE PHOSPHATE
     Dosage: UNK
  8. MERREM [Suspect]
     Active Substance: MEROPENEM
     Indication: FEBRILE NEUTROPENIA
     Dosage: UNK
     Route: 042
  9. CYTARABINE. [Concomitant]
     Active Substance: CYTARABINE
     Dosage: UNK
  10. COLAZAL [Concomitant]
     Active Substance: BALSALAZIDE DISODIUM
     Dosage: UNK

REACTIONS (3)
  - Haemorrhoids [Recovered/Resolved]
  - Abdominal pain [Unknown]
  - Tachycardia [Unknown]
